FAERS Safety Report 8394322-X (Version None)
Quarter: 2012Q2

REPORT INFORMATION
  Report Type: 
  Country: None (occurrence: None)
  Receive Date: 20120530
  Receipt Date: 20120521
  Transmission Date: 20120825
  Serious: Yes (Hospitalization)
  Sender: FDA-Public Use
  Company Number: US-JNJFOC-20111206623

PATIENT
  Sex: Female
  Weight: 58.6 kg

DRUGS (40)
  1. BENTYL [Concomitant]
  2. OXYCODONE HCL [Concomitant]
  3. MAGNESIUM OXIDE [Concomitant]
  4. ISOFLURANE [Concomitant]
  5. NEOSTIGMINE [Concomitant]
  6. PHENYLEPHRINE HCL [Concomitant]
  7. ROCURONIUM BROMIDE [Concomitant]
  8. VITAMIN D [Concomitant]
  9. AZITHROMYCIN [Concomitant]
  10. POTASSIUM CHLORIDE [Concomitant]
  11. IMODIUM [Concomitant]
  12. 5% DEXTROSE IN 0.45% NORMAL SALINE [Concomitant]
  13. DEXMEDETOMODINE HYDROCHLORIDE [Concomitant]
  14. FENTANYL-100 [Concomitant]
  15. TYLENOL [Concomitant]
  16. DEXAMETHASONE [Concomitant]
  17. PROMETHAZINE [Concomitant]
  18. MIDAZOLAM [Concomitant]
  19. HYOSCYAMINE [Concomitant]
  20. HYDROMORPHONE HCL [Concomitant]
  21. ONDANSETRON [Concomitant]
  22. TRIMETHOPRIM [Concomitant]
  23. AMOXICILLIN [Concomitant]
  24. ZYDONE [Concomitant]
  25. DEXTROSE+NACL+KCL [Concomitant]
  26. ATIVAN [Concomitant]
  27. HEPARIN [Suspect]
     Indication: PRODUCT USED FOR UNKNOWN INDICATION
  28. SIMETHICONE [Concomitant]
  29. LIDOCAINE [Concomitant]
  30. SODIUM CHLORIDE [Concomitant]
  31. LACTATED RINGER'S [Concomitant]
  32. ERTAPENEM [Concomitant]
  33. INFLIXIMAB, RECOMBINANT [Suspect]
     Indication: COLITIS ULCERATIVE
     Route: 042
     Dates: start: 20110902, end: 20111013
  34. SCOPOLAMINE [Concomitant]
  35. BENADRYL [Concomitant]
  36. PROPOFOL [Concomitant]
  37. BUPIVACAINE HCL [Concomitant]
  38. FLOMAX [Concomitant]
  39. VOLUVEN [Concomitant]
  40. GLYCOPYRROLATE [Concomitant]

REACTIONS (2)
  - GASTROINTESTINAL HAEMORRHAGE [None]
  - COLITIS ULCERATIVE [None]
